FAERS Safety Report 12083156 (Version 3)
Quarter: 2016Q1

REPORT INFORMATION
  Report Type: Spontaneous
  Country: NL (occurrence: NL)
  Receive Date: 20160217
  Receipt Date: 20160321
  Transmission Date: 20160526
  Serious: Yes (Death, Hospitalization, Other)
  Sender: FDA-Public Use
  Company Number: NL-TOLMAR, INC.-2016NL001319

PATIENT
  Sex: Male

DRUGS (9)
  1. HYDROCHLOROTHIAZID [Concomitant]
     Active Substance: HYDROCHLOROTHIAZIDE
  2. ELIGARD [Suspect]
     Active Substance: LEUPROLIDE ACETATE
     Dosage: 45 MG, 1 X PER 6 MONTHS
     Route: 058
     Dates: start: 20151021
  3. BISOPROLOL [Concomitant]
     Active Substance: BISOPROLOL
  4. VESOMNI [Concomitant]
  5. OMEPRAZOLE. [Concomitant]
     Active Substance: OMEPRAZOLE
  6. MOVICOLON [Concomitant]
     Active Substance: POLYETHYLENE GLYCOL 3350\POTASSIUM CHLORIDE\SODIUM BICARBONATE\SODIUM CHLORIDE
  7. NAPROXEN. [Concomitant]
     Active Substance: NAPROXEN
  8. ELIGARD [Suspect]
     Active Substance: LEUPROLIDE ACETATE
     Indication: PROSTATE CANCER
     Dosage: 45 MG, 1 X PER 6 MONTHS
     Route: 058
     Dates: start: 20150417
  9. ACETYLSALICYLIC ACID [Concomitant]
     Active Substance: ASPIRIN

REACTIONS (8)
  - Myocardial infarction [Unknown]
  - Malignant neoplasm progression [Fatal]
  - Pneumonia [Fatal]
  - Memory impairment [Unknown]
  - Peritonitis [Fatal]
  - Sepsis [Unknown]
  - Coronary artery disease [Unknown]
  - Pollakiuria [Unknown]
